FAERS Safety Report 8128250-1 (Version None)
Quarter: 2012Q1

REPORT INFORMATION
  Report Type: 
  Country: None (occurrence: None)
  Receive Date: 20120210
  Receipt Date: 20120208
  Transmission Date: 20120608
  Serious: Yes (Hospitalization)
  Sender: FDA-Public Use
  Company Number: MY-ROCHE-1035205

PATIENT
  Sex: Female
  Weight: 44.7 kg

DRUGS (4)
  1. PEGINTERFERON ALFA-2A [Suspect]
     Indication: HEPATITIS C
     Route: 048
     Dates: start: 20111220, end: 20120111
  2. PEGINTERFERON ALFA-2A [Suspect]
     Route: 058
     Dates: start: 20120203
  3. COPEGUS [Suspect]
     Route: 048
     Dates: start: 20110203
  4. COPEGUS [Suspect]
     Indication: HEPATITIS C
     Route: 048
     Dates: start: 20111220, end: 20120111

REACTIONS (4)
  - HAEMOGLOBIN DECREASED [None]
  - PLATELET COUNT DECREASED [None]
  - WHITE BLOOD CELL COUNT DECREASED [None]
  - NEUTROPENIC SEPSIS [None]
